FAERS Safety Report 9753940 (Version 1)
Quarter: 2013Q4

REPORT INFORMATION
  Report Type: Report from Study
  Country: GB (occurrence: GB)
  Receive Date: 20131213
  Receipt Date: 20131213
  Transmission Date: 20140711
  Serious: Yes (Hospitalization, Other)
  Sender: FDA-Public Use
  Company Number: GB-JNJFOC-20131204126

PATIENT
  Age: 34 Year
  Sex: Female
  Weight: 103 kg

DRUGS (5)
  1. STELARA [Suspect]
     Indication: PSORIASIS
     Route: 058
     Dates: start: 20100323
  2. TRAMADOL [Concomitant]
     Route: 065
     Dates: start: 20080818
  3. FOLIC ACID [Concomitant]
     Route: 065
     Dates: start: 20080818
  4. HYDROXYZINE [Concomitant]
     Route: 065
     Dates: start: 20080918
  5. NORETHISTERONE [Concomitant]
     Route: 065
     Dates: start: 20110228, end: 20110630

REACTIONS (1)
  - Hysterectomy [Recovered/Resolved]
